FAERS Safety Report 23378591 (Version 2)
Quarter: 2024Q1

REPORT INFORMATION
  Report Type: Spontaneous
  Country: GB (occurrence: GB)
  Receive Date: 20240108
  Receipt Date: 20240129
  Transmission Date: 20240409
  Serious: Yes (Hospitalization, Other)
  Sender: FDA-Public Use
  Company Number: GB-MYLANLABS-2023M1077143

PATIENT
  Age: 39 Year
  Sex: Female

DRUGS (2)
  1. CLOZARIL [Suspect]
     Active Substance: CLOZAPINE
     Indication: Schizophrenia
     Dosage: 275 MILLIGRAM, QD
     Route: 048
     Dates: start: 201211, end: 20231205
  2. CLOZARIL [Suspect]
     Active Substance: CLOZAPINE
     Dosage: 175MG W1, 112.5MG W2, 50MG W3 AND 25MG W4
     Route: 048
     Dates: start: 20231205, end: 20240101

REACTIONS (3)
  - Anaemia [Not Recovered/Not Resolved]
  - Tachycardia [Not Recovered/Not Resolved]
  - Treatment noncompliance [Unknown]

NARRATIVE: CASE EVENT DATE: 20121101
